FAERS Safety Report 23971835 (Version 2)
Quarter: 2024Q3

REPORT INFORMATION
  Report Type: Spontaneous
  Country: US (occurrence: US)
  Receive Date: 20240613
  Receipt Date: 20240715
  Transmission Date: 20241016
  Serious: No
  Sender: PFIZER
  Company Number: US-PFIZER INC-PV202400075636

PATIENT
  Age: 49 Year
  Sex: Female

DRUGS (1)
  1. BESPONSA [Suspect]
     Active Substance: INOTUZUMAB OZOGAMICIN
     Dosage: 1.69 MG ONCE A WEEK EVERY 21 DAYS
     Dates: start: 201706

REACTIONS (2)
  - Illness [Unknown]
  - Off label use [Unknown]
